FAERS Safety Report 4382853-9 (Version None)
Quarter: 2004Q2

REPORT INFORMATION
  Report Type: 
  Country: None (occurrence: None)
  Receive Date: 20040602
  Receipt Date: 20031001
  Transmission Date: 20050107
  Serious: Yes (Other)
  Sender: FDA-Public Use
  Company Number: NSADSS2003002737

PATIENT
  Age: 63 Year
  Sex: Female
  Weight: 92.5338 kg

DRUGS (1)
  1. PROPULSID [Suspect]
     Dosage: 10 MG
     Dates: start: 19960117, end: 19971031

REACTIONS (5)
  - ANXIETY [None]
  - ARRHYTHMIA [None]
  - CARDIAC DISORDER [None]
  - ELECTROCARDIOGRAM QT PROLONGED [None]
  - PALPITATIONS [None]
